FAERS Safety Report 4409473-1 (Version None)
Quarter: 2004Q3

REPORT INFORMATION
  Report Type: 
  Country: None (occurrence: None)
  Receive Date: 20040723
  Receipt Date: 20040713
  Transmission Date: 20050211
  Serious: Yes (Other)
  Sender: FDA-Public Use
  Company Number: 2004010631

PATIENT
  Age: 47 Year
  Sex: Female
  Weight: 80.2867 kg

DRUGS (2)
  1. ZOLOFT [Suspect]
     Indication: DEPRESSION
     Dosage: 50 MG DAILY ORAL
     Route: 048
     Dates: start: 19990101
  2. ANTIBIOTICS [Concomitant]

REACTIONS (6)
  - BLINDNESS UNILATERAL [None]
  - DRUG WITHDRAWAL SYNDROME [None]
  - GALACTORRHOEA [None]
  - MIGRAINE [None]
  - SUICIDE ATTEMPT [None]
  - THERAPY NON-RESPONDER [None]
